FAERS Safety Report 15081707 (Version 1)
Quarter: 2018Q2

REPORT INFORMATION
  Report Type: Spontaneous
  Country: US (occurrence: US)
  Receive Date: 20180628
  Receipt Date: 20180628
  Transmission Date: 20180711
  Serious: No
  Sender: FDA-Public Use
  Company Number: US-ROCHE-2143653

PATIENT
  Sex: Female

DRUGS (1)
  1. OCREVUS [Suspect]
     Active Substance: OCRELIZUMAB
     Indication: PRIMARY PROGRESSIVE MULTIPLE SCLEROSIS
     Route: 065

REACTIONS (5)
  - Hypersensitivity [Unknown]
  - Lower respiratory tract congestion [Unknown]
  - Dyspnoea [Unknown]
  - Asthenia [Unknown]
  - Nasopharyngitis [Unknown]
